FAERS Safety Report 9343689 (Version 3)
Quarter: 2013Q3

REPORT INFORMATION
  Report Type: Spontaneous
  Country: FR (occurrence: None)
  Receive Date: 20130610
  Receipt Date: 20130709
  Transmission Date: 20140515
  Serious: Yes (Other)
  Sender: FDA-Public Use
  Company Number: 2013-0922

PATIENT
  Age: 68 Year
  Sex: Female

DRUGS (10)
  1. CARFILZOMIB [Suspect]
     Indication: PLASMA CELL MYELOMA
     Dosage: 36 MG/M2 (36 MG/M2, 1 IN  1 D), ORAL INTRAVENOUS
     Route: 042
     Dates: start: 20120606, end: 20121031
  2. MELPHALAN [Concomitant]
     Indication: PLASMA CELL MYELOMA
  3. PREDNISONE (PREDNISONE) [Concomitant]
  4. DEXAMETHASONE (DEXAMETHASONE) (DEXAMETHASONE) [Concomitant]
  5. ESOMEPRAZOLE [Concomitant]
  6. LERCANIDIPINE [Concomitant]
  7. ZOLEDRONIC ACID [Concomitant]
  8. CALCIUM + VITAMIN D3 [Concomitant]
  9. ESCITALOPRAM [Concomitant]
  10. ZOPICLONE [Concomitant]

REACTIONS (1)
  - Haemolytic anaemia [None]
